FAERS Safety Report 23058927 (Version 1)
Quarter: 2023Q4

REPORT INFORMATION
  Report Type: Spontaneous
  Country: US (occurrence: US)
  Receive Date: 20231012
  Receipt Date: 20231012
  Transmission Date: 20240110
  Serious: No
  Sender: FDA-Public Use
  Company Number: US-PFIZER INC-202300322128

PATIENT
  Age: 62 Year
  Sex: Female

DRUGS (9)
  1. PAXLOVID [Suspect]
     Active Substance: NIRMATRELVIR\RITONAVIR
     Indication: COVID-19 treatment
     Dosage: UNK
     Dates: start: 20230922, end: 20230927
  2. ALEM [Concomitant]
     Dosage: UNK
     Dates: start: 20230727
  3. AURO FINASTERIDE [Concomitant]
     Dosage: UNK
     Dates: start: 20230531
  4. NORT [Concomitant]
     Dosage: UNK
     Dates: start: 20230813, end: 20230923
  5. AMITRIPTYLINE [Concomitant]
     Active Substance: AMITRIPTYLINE
     Dosage: UNK
     Dates: start: 20230703
  6. MELATONIN [Concomitant]
     Active Substance: MELATONIN
     Dosage: UNK
     Dates: start: 20210701
  7. PROBIOTICS NOS [Concomitant]
     Active Substance: PROBIOTICS NOS
     Dosage: UNK
     Dates: start: 20211001
  8. AJAN [Concomitant]
     Dosage: UNK
     Dates: start: 20050706
  9. IPRATROPIUM [Concomitant]
     Active Substance: IPRATROPIUM
     Dosage: UNK
     Dates: start: 20221229

REACTIONS (4)
  - Headache [Recovering/Resolving]
  - Upper respiratory tract congestion [Recovering/Resolving]
  - Fatigue [Recovering/Resolving]
  - Myalgia [Recovering/Resolving]

NARRATIVE: CASE EVENT DATE: 20231008
